FAERS Safety Report 5716496-9 (Version None)
Quarter: 2008Q2

REPORT INFORMATION
  Report Type: 
  Country: None (occurrence: None)
  Receive Date: 20080424
  Receipt Date: 20080402
  Transmission Date: 20081010
  Serious: No
  Sender: FDA-Public Use
  Company Number: US-BAXTER-2008BH003926

PATIENT
  Age: 21 Year
  Sex: Female
  Weight: 76 kg

DRUGS (2)
  1. HEPARIN SODIUM [Suspect]
     Indication: COAGULOPATHY
     Route: 058
     Dates: start: 20050101, end: 20060101
  2. ADVAIR HFA [Concomitant]
     Indication: ASTHMA
     Dosage: DOSE UNIT:UNKNOWN
     Route: 065

REACTIONS (1)
  - DRUG EXPOSURE DURING PREGNANCY [None]
